FAERS Safety Report 8583998 (Version 3)
Quarter: 2012Q4

REPORT INFORMATION
  Report Type: 
  Country: US (occurrence: US)
  Receive Date: 20120529
  Receipt Date: 20121012
  Transmission Date: 20130627
  Serious: Yes (Death, Hospitalization, Other)
  Sender: FDA-Public Use
  Company Number: US-ACTELION-A-NJ2011-57081

PATIENT
  Age: 73 Year
  Sex: Male

DRUGS (6)
  1. TRACLEER [Suspect]
     Indication: PULMONARY ARTERIAL HYPERTENSION
     Dosage: UNK
     Route: 048
  2. TRACLEER [Suspect]
     Dosage: UNK
     Route: 048
  3. COUMADIN [Suspect]
  4. REVATIO [Concomitant]
  5. BETA BLOCKING AGENTS [Concomitant]
  6. ASPIRIN [Concomitant]

REACTIONS (14)
  - Subdural haematoma [Fatal]
  - Cerebral haemorrhage [Fatal]
  - Myeloproliferative disorder [Unknown]
  - Autoimmune aplastic anaemia [Unknown]
  - Haemorrhage [Unknown]
  - Endotracheal intubation [Not Recovered/Not Resolved]
  - Fall [Not Recovered/Not Resolved]
  - Dyspnoea [Unknown]
  - Fatigue [Not Recovered/Not Resolved]
  - No therapeutic response [Unknown]
  - Pericardial effusion [Unknown]
  - Fluid overload [Unknown]
  - Malaise [Unknown]
  - Headache [Not Recovered/Not Resolved]
